FAERS Safety Report 5097741-2 (Version None)
Quarter: 2006Q3

REPORT INFORMATION
  Report Type: 
  Country: None (occurrence: None)
  Receive Date: 20060901
  Receipt Date: 20060821
  Transmission Date: 20061208
  Serious: Yes (Other)
  Sender: FDA-Public Use
  Company Number: 2006101744

PATIENT
  Age: 74 Year
  Sex: Female
  Weight: 53.0709 kg

DRUGS (5)
  1. ZYVOX [Suspect]
     Indication: STAPHYLOCOCCAL INFECTION
     Dosage: 1200 MG (600 MG, 2 IN 1 D), ORAL
     Route: 048
     Dates: start: 20060815
  2. FOSAMAX [Concomitant]
  3. SINGULAIR [Concomitant]
  4. CLARITIN [Concomitant]
  5. SPIRIVA [Concomitant]

REACTIONS (7)
  - COLONOSCOPY [None]
  - DYSPHAGIA [None]
  - EATING DISORDER [None]
  - GINGIVITIS [None]
  - GLOSSODYNIA [None]
  - MASTICATION DISORDER [None]
  - TONGUE DISORDER [None]
